FAERS Safety Report 7601422-8 (Version None)
Quarter: 2011Q3

REPORT INFORMATION
  Report Type: 
  Country: None (occurrence: None)
  Receive Date: 20110711
  Receipt Date: 20110705
  Transmission Date: 20111222
  Serious: Yes (Death)
  Sender: FDA-Public Use
  Company Number: FR-MERCK-1107FRA00021

PATIENT
  Age: 62 Year
  Sex: Male

DRUGS (5)
  1. ROTIGOTINE [Suspect]
     Indication: PARKINSON'S DISEASE
     Route: 061
     Dates: start: 20110418, end: 20110420
  2. RASAGILINE MESYLATE [Suspect]
     Indication: PARKINSON'S DISEASE
     Route: 048
     Dates: start: 20100717, end: 20110420
  3. CARBIDOPA, LEVODOPA, ENTACAPONE [Suspect]
     Indication: PARKINSON'S DISEASE
     Route: 048
     Dates: start: 20050604, end: 20110420
  4. SINEMET [Suspect]
     Indication: PARKINSON'S DISEASE
     Route: 048
     Dates: start: 20061228, end: 20110420
  5. ROPINIROLE HYDROCHLORIDE [Suspect]
     Indication: PARKINSON'S DISEASE
     Route: 048
     Dates: end: 20110417

REACTIONS (1)
  - DEATH [None]
